FAERS Safety Report 9135114 (Version 1)
Quarter: 2013Q1

REPORT INFORMATION
  Report Type: Spontaneous
  Country: AU (occurrence: AU)
  Receive Date: 20130304
  Receipt Date: 20130304
  Transmission Date: 20140127
  Serious: Yes (Hospitalization)
  Sender: FDA-Public Use
  Company Number: AU-SANOFI-AVENTIS-2013SA020011

PATIENT
  Age: 76 Year
  Sex: Female

DRUGS (10)
  1. PLAQUENIL [Suspect]
     Indication: PRODUCT USED FOR UNKNOWN INDICATION
     Route: 065
     Dates: start: 2011
  2. ASPIRIN [Concomitant]
  3. PANADOL [Concomitant]
  4. METHOTREXATE [Concomitant]
  5. FOLIC ACID [Concomitant]
  6. RAMIPRIL [Concomitant]
  7. THYROXIN [Concomitant]
  8. ATORVASTATIN [Concomitant]
  9. AMITRIPTYLINE [Concomitant]
  10. PREDNISOLONE [Concomitant]

REACTIONS (1)
  - Vestibular neuronitis [Unknown]
